FAERS Safety Report 10369204 (Version 1)
Quarter: 2014Q3

REPORT INFORMATION
  Report Type: Spontaneous
  Country: FR (occurrence: FR)
  Receive Date: 20140807
  Receipt Date: 20140807
  Transmission Date: 20150326
  Serious: Yes (Hospitalization)
  Sender: FDA-Public Use
  Company Number: FR-PFIZER INC-2014218214

PATIENT
  Age: 68 Year
  Sex: Female

DRUGS (14)
  1. FLECAINE [Concomitant]
     Active Substance: FLECAINIDE
     Dosage: UNK
  2. PROFENID [Concomitant]
     Active Substance: KETOPROFEN
     Dosage: UNK
  3. XARELTO [Suspect]
     Active Substance: RIVAROXABAN
     Dosage: UNK
     Route: 048
     Dates: start: 20140408, end: 20140409
  4. INIPOMP [Concomitant]
     Active Substance: PANTOPRAZOLE SODIUM
     Dosage: UNK
  5. KARDEGIC [Suspect]
     Active Substance: ASPIRIN LYSINE
     Dosage: UNK
     Route: 048
     Dates: end: 20140409
  6. IRBESARTAN. [Concomitant]
     Active Substance: IRBESARTAN
     Dosage: UNK
  7. LOXEN [Concomitant]
     Active Substance: NICARDIPINE HYDROCHLORIDE
     Dosage: UNK
  8. TOPALGIC [Concomitant]
     Active Substance: TRAMADOL
     Dosage: UNK
  9. CORDARONE [Suspect]
     Active Substance: AMIODARONE HYDROCHLORIDE
     Dosage: UNK
     Route: 048
     Dates: end: 20140409
  10. PRADAXA [Interacting]
     Active Substance: DABIGATRAN ETEXILATE MESYLATE
     Indication: ATRIAL FIBRILLATION
     Dosage: 1 DF, UNK
     Route: 048
     Dates: start: 20140322, end: 20140409
  11. PERFALGAN [Concomitant]
     Active Substance: ACETAMINOPHEN
     Dosage: UNK
  12. ZOPHREN [Concomitant]
     Active Substance: ONDANSETRON
     Dosage: UNK
  13. LEVOTHYROX [Concomitant]
     Active Substance: LEVOTHYROXINE
     Dosage: UNK
  14. EUPRESSYL [Concomitant]
     Active Substance: URAPIDIL
     Dosage: UNK

REACTIONS (4)
  - Drug interaction [Unknown]
  - Pericardial effusion [Recovering/Resolving]
  - Haemorrhage [Recovering/Resolving]
  - Cardiac tamponade [Recovering/Resolving]
